FAERS Safety Report 8447061-0 (Version None)
Quarter: 2012Q2

REPORT INFORMATION
  Report Type: 
  Country: None (occurrence: None)
  Receive Date: 20120619
  Receipt Date: 20120613
  Transmission Date: 20120825
  Serious: Yes (Other)
  Sender: FDA-Public Use
  Company Number: PHHY2012GB051112

PATIENT
  Age: 69 Year
  Sex: Male

DRUGS (1)
  1. TACROLIMUS [Suspect]
     Dosage: 5 MG, DAILY DOSE
     Route: 048
     Dates: start: 20120101

REACTIONS (8)
  - MENTAL IMPAIRMENT [None]
  - DEPRESSION [None]
  - GAIT DISTURBANCE [None]
  - HALLUCINATION [None]
  - NEUROTOXICITY [None]
  - HYPERSOMNIA [None]
  - SLOW SPEECH [None]
  - DEPRESSED MOOD [None]
